FAERS Safety Report 16229292 (Version 1)
Quarter: 2019Q2

REPORT INFORMATION
  Report Type: Spontaneous
  Country: US (occurrence: US)
  Receive Date: 20190423
  Receipt Date: 20190423
  Transmission Date: 20190711
  Serious: No
  Sender: FDA-Public Use
  Company Number: US-HIKMA PHARMACEUTICALS USA INC.-US-H14001-19-00386

PATIENT
  Sex: Male

DRUGS (5)
  1. QUETIAPINE. [Suspect]
     Active Substance: QUETIAPINE
     Route: 048
     Dates: start: 20160408
  2. QUETIAPINE. [Suspect]
     Active Substance: QUETIAPINE
     Route: 048
     Dates: start: 20170101, end: 20170215
  3. QUETIAPINE. [Suspect]
     Active Substance: QUETIAPINE
     Indication: SEASONAL AFFECTIVE DISORDER
     Route: 048
     Dates: start: 20150303
  4. QUETIAPINE. [Suspect]
     Active Substance: QUETIAPINE
     Indication: BIPOLAR DISORDER
     Route: 048
     Dates: start: 20151015
  5. QUETIAPINE. [Suspect]
     Active Substance: QUETIAPINE
     Indication: POST-TRAUMATIC STRESS DISORDER
     Route: 048
     Dates: start: 20160408

REACTIONS (5)
  - Headache [Unknown]
  - Insomnia [Unknown]
  - Weight increased [Unknown]
  - Gastrointestinal disorder [Unknown]
  - Drug ineffective [Recovered/Resolved]
